FAERS Safety Report 8533870-6 (Version None)
Quarter: 2012Q3

REPORT INFORMATION
  Report Type: 
  Country: None (occurrence: None)
  Receive Date: 20120724
  Receipt Date: 20120718
  Transmission Date: 20120928
  Serious: Yes (Life-Threatening, Hospitalization)
  Sender: FDA-Public Use
  Company Number: DE-ROCHE-1078844

PATIENT
  Sex: Male
  Weight: 71.2 kg

DRUGS (8)
  1. LEVOTHYROXINE SODIUM [Concomitant]
     Dates: start: 20110218
  2. PHOSPHONORM [Concomitant]
     Dates: start: 20110506
  3. ASPIRIN [Concomitant]
     Dates: start: 20110218
  4. DREISAVIT N [Concomitant]
     Dates: start: 20110718
  5. IRON SUCCINYL-PROTEIN COMPLEX [Concomitant]
     Dates: start: 20111019
  6. TORSEMIDE [Concomitant]
     Dates: start: 20110304
  7. MIRCERA [Suspect]
     Indication: PRODUCT USED FOR UNKNOWN INDICATION
     Dosage: DATE OF LAST DOSE PIROR TO SAE 19/MAR/2012
     Route: 042
     Dates: start: 20120314
  8. CITALOPRAM [Concomitant]
     Dates: start: 20120125

REACTIONS (1)
  - PNEUMONIA [None]
